FAERS Safety Report 9845696 (Version 14)
Quarter: 2014Q4

REPORT INFORMATION
  Report Type: Spontaneous
  Country: US (occurrence: US)
  Receive Date: 20140127
  Receipt Date: 20141222
  Transmission Date: 20150529
  Serious: Yes (Other)
  Sender: FDA-Public Use
  Company Number: US-PFIZER INC-2014020242

PATIENT
  Age: 85 Year
  Sex: Female
  Weight: 74.83 kg

DRUGS (8)
  1. SUTENT [Suspect]
     Active Substance: SUNITINIB MALATE
     Dosage: 2 WEEKS ON, 1 WEEK OFF
     Dates: start: 201408
  2. SUTENT [Suspect]
     Active Substance: SUNITINIB MALATE
     Dosage: 37.5 MG, DAILY
     Dates: start: 20140203
  3. NORVASC [Concomitant]
     Active Substance: AMLODIPINE BESYLATE
     Dosage: UNK
  4. TENORMIN [Concomitant]
     Active Substance: ATENOLOL
     Dosage: UNK
  5. LEVOTHYROXINE [Concomitant]
     Active Substance: LEVOTHYROXINE
     Dosage: UNK
  6. FISH OIL [Concomitant]
     Active Substance: FISH OIL
     Dosage: UNK
  7. SIMVASTATIN. [Concomitant]
     Active Substance: SIMVASTATIN
     Dosage: UNK
  8. SUTENT [Suspect]
     Active Substance: SUNITINIB MALATE
     Indication: METASTATIC RENAL CELL CARCINOMA
     Dosage: 50 MG, DAILY (FOR 28 DAYS, OFF 14 DAYS)
     Dates: start: 20140107, end: 20140124

REACTIONS (24)
  - Thyroid disorder [Recovered/Resolved]
  - Diarrhoea [Not Recovered/Not Resolved]
  - Skin irritation [Recovered/Resolved]
  - Dry skin [Not Recovered/Not Resolved]
  - Leukopenia [Not Recovered/Not Resolved]
  - Night sweats [Recovered/Resolved]
  - Trichorrhexis [Not Recovered/Not Resolved]
  - Limb discomfort [Not Recovered/Not Resolved]
  - Rash [Recovered/Resolved]
  - Fatigue [Recovered/Resolved]
  - Skin exfoliation [Recovering/Resolving]
  - Musculoskeletal stiffness [Recovered/Resolved]
  - Back pain [Recovered/Resolved]
  - Flatulence [Not Recovered/Not Resolved]
  - Blister [Not Recovered/Not Resolved]
  - Pruritus [Recovered/Resolved]
  - Faeces discoloured [Not Recovered/Not Resolved]
  - Palmar-plantar erythrodysaesthesia syndrome [Not Recovered/Not Resolved]
  - Chills [Recovered/Resolved]
  - Dyspepsia [Recovered/Resolved]
  - Pain in extremity [Recovering/Resolving]
  - Cystitis [Recovered/Resolved]
  - Dysgeusia [Not Recovered/Not Resolved]
  - Ageusia [Not Recovered/Not Resolved]

NARRATIVE: CASE EVENT DATE: 201401
